FAERS Safety Report 5486548-X (Version None)
Quarter: 2007Q3

REPORT INFORMATION
  Report Type: 
  Country: None (occurrence: None)
  Receive Date: 20070919
  Receipt Date: 20070521
  Transmission Date: 20080115
  Serious: No
  Sender: FDA-Public Use
  Company Number: 2007RL000226

PATIENT
  Age: 54 Year
  Sex: Female
  Weight: 80.7403 kg

DRUGS (5)
  1. OMACOR (I GM) [Suspect]
     Indication: BLOOD TRIGLYCERIDES INCREASED
     Dosage: 2 GM; QD; PO
     Route: 048
     Dates: start: 20050101, end: 20070518
  2. CRESTOR [Concomitant]
  3. DICLOFENAC SODIUM [Concomitant]
  4. SYNTHROID [Concomitant]
  5. PREMARIN [Concomitant]

REACTIONS (2)
  - PRURITUS [None]
  - URTICARIA [None]
